FAERS Safety Report 8160093-5 (Version None)
Quarter: 2012Q1

REPORT INFORMATION
  Report Type: 
  Country: None (occurrence: None)
  Receive Date: 20120223
  Receipt Date: 20120221
  Transmission Date: 20120608
  Serious: No
  Sender: FDA-Public Use
  Company Number: US-PFIZER INC-2012046055

PATIENT
  Sex: Female
  Weight: 13.152 kg

DRUGS (2)
  1. IBUPROFEN (ADVIL) [Suspect]
     Dosage: 800 MG, UNK
     Route: 048
     Dates: start: 20120221
  2. MOTRIN [Concomitant]
     Indication: TOOTH DISORDER
     Dosage: UNK

REACTIONS (1)
  - ACCIDENTAL DRUG INTAKE BY CHILD [None]
